FAERS Safety Report 23180884 (Version 2)
Quarter: 2024Q1

REPORT INFORMATION
  Report Type: Spontaneous
  Country: CA (occurrence: CA)
  Receive Date: 20231114
  Receipt Date: 20240104
  Transmission Date: 20240409
  Serious: No
  Sender: FDA-Public Use
  Company Number: CA-PFIZER INC-PV202300177912

PATIENT
  Sex: Female

DRUGS (1)
  1. NGENLA [Suspect]
     Active Substance: SOMATROGON-GHLA
     Dosage: 24 MG, WEEKLY

REACTIONS (3)
  - Device difficult to use [Unknown]
  - Device malfunction [Unknown]
  - Injection site pain [Unknown]
